FAERS Safety Report 15775999 (Version 2)
Quarter: 2020Q1

REPORT INFORMATION
  Report Type: Spontaneous
  Country: CN (occurrence: CN)
  Receive Date: 20181231
  Receipt Date: 20200118
  Transmission Date: 20200409
  Serious: Yes (Other)
  Sender: FDA-Public Use
  Company Number: CN-ROCHE-2235648

PATIENT
  Age: 49 Year
  Sex: Female

DRUGS (16)
  1. BEVACIZUMAB. [Suspect]
     Active Substance: BEVACIZUMAB
     Indication: ABDOMINAL NEOPLASM
     Route: 042
     Dates: start: 20150924
  2. OXALIPLATIN. [Concomitant]
     Active Substance: OXALIPLATIN
     Indication: COLON CANCER
     Route: 065
     Dates: start: 20150308, end: 20150721
  3. IRINOTECAN [Concomitant]
     Active Substance: IRINOTECAN
     Indication: COLON CANCER
     Route: 065
     Dates: start: 20150924
  4. IRINOTECAN [Concomitant]
     Active Substance: IRINOTECAN
     Indication: PELVIC NEOPLASM
  5. BEVACIZUMAB. [Suspect]
     Active Substance: BEVACIZUMAB
     Indication: COLON CANCER
     Route: 042
     Dates: start: 20150308, end: 20150721
  6. OXALIPLATIN. [Concomitant]
     Active Substance: OXALIPLATIN
     Indication: ABDOMINAL NEOPLASM
  7. FOLINIC ACID [Concomitant]
     Active Substance: LEUCOVORIN
     Indication: PELVIC NEOPLASM
  8. FLUOROURACIL. [Concomitant]
     Active Substance: FLUOROURACIL
     Indication: ABDOMINAL NEOPLASM
     Route: 065
     Dates: start: 20150924
  9. BEVACIZUMAB. [Suspect]
     Active Substance: BEVACIZUMAB
     Indication: PELVIC NEOPLASM
     Route: 042
     Dates: start: 20160713
  10. BEVACIZUMAB. [Suspect]
     Active Substance: BEVACIZUMAB
     Route: 042
     Dates: start: 20170301
  11. FOLINIC ACID [Concomitant]
     Active Substance: LEUCOVORIN
     Indication: COLON CANCER
     Route: 065
     Dates: start: 20150308, end: 20150609
  12. FLUOROURACIL. [Concomitant]
     Active Substance: FLUOROURACIL
     Indication: PELVIC NEOPLASM
     Route: 065
     Dates: start: 20170301
  13. OXALIPLATIN. [Concomitant]
     Active Substance: OXALIPLATIN
     Indication: PELVIC NEOPLASM
  14. FOLINIC ACID [Concomitant]
     Active Substance: LEUCOVORIN
     Indication: ABDOMINAL NEOPLASM
     Route: 065
     Dates: start: 20150924
  15. FLUOROURACIL. [Concomitant]
     Active Substance: FLUOROURACIL
     Indication: COLON CANCER
     Route: 065
     Dates: start: 20150308, end: 20150721
  16. IRINOTECAN [Concomitant]
     Active Substance: IRINOTECAN
     Indication: ABDOMINAL NEOPLASM

REACTIONS (4)
  - Central nervous system infection [Unknown]
  - Bone marrow failure [Unknown]
  - Peripheral nerve injury [Unknown]
  - Gastrointestinal disorder [Unknown]
